FAERS Safety Report 15885759 (Version 1)
Quarter: 2019Q1

REPORT INFORMATION
  Report Type: Spontaneous
  Country: US (occurrence: US)
  Receive Date: 20190129
  Receipt Date: 20190129
  Transmission Date: 20190417
  Serious: No
  Sender: FDA-Public Use
  Company Number: US-JNJFOC-20190126963

PATIENT
  Sex: Male
  Weight: 3.4 kg

DRUGS (1)
  1. STELARA [Suspect]
     Active Substance: USTEKINUMAB
     Indication: CROHN^S DISEASE
     Route: 064
     Dates: start: 201803

REACTIONS (7)
  - Jaundice [Unknown]
  - Foetal exposure during pregnancy [Unknown]
  - Blood glucose decreased [Unknown]
  - Weight decrease neonatal [Recovering/Resolving]
  - Grunting [Unknown]
  - Skin discolouration [Unknown]
  - Eating disorder symptom [Unknown]
